FAERS Safety Report 13159621 (Version 1)
Quarter: 2017Q1

REPORT INFORMATION
  Report Type: Spontaneous
  Country: US (occurrence: US)
  Receive Date: 20170127
  Receipt Date: 20170127
  Transmission Date: 20170428
  Serious: Yes (Death, Life-Threatening, Other)
  Sender: FDA-Public Use
  Company Number: US-MYLANLABS-2017M1004790

PATIENT

DRUGS (2)
  1. SODIUM BICARBONATE. [Suspect]
     Active Substance: SODIUM BICARBONATE
     Indication: RESUSCITATION
     Dosage: UNK
  2. EPINEPHRINE. [Suspect]
     Active Substance: EPINEPHRINE
     Indication: RESUSCITATION
     Dosage: UNK

REACTIONS (1)
  - Drug ineffective [Fatal]
